FAERS Safety Report 24164642 (Version 2)
Quarter: 2024Q3

REPORT INFORMATION
  Report Type: Spontaneous
  Country: US (occurrence: US)
  Receive Date: 20240801
  Receipt Date: 20240816
  Transmission Date: 20241017
  Serious: Yes (Life-Threatening, Hospitalization)
  Sender: TEVA
  Company Number: US-TEVA-VS-3224988

PATIENT
  Age: 66 Year
  Sex: Female

DRUGS (5)
  1. NALOXONE [Suspect]
     Active Substance: NALOXONE
     Indication: Overdose
     Route: 042
  2. NALOXONE [Suspect]
     Active Substance: NALOXONE
     Dosage: INTRANASAL
     Route: 045
  3. OXYCODONE [Suspect]
     Active Substance: OXYCODONE
     Indication: Pain
     Route: 065
  4. MORPHINE [Suspect]
     Active Substance: MORPHINE
     Indication: Pain
     Route: 065
  5. NALOXONE [Suspect]
     Active Substance: NALOXONE
     Indication: Overdose
     Route: 042

REACTIONS (4)
  - Withdrawal syndrome [Recovering/Resolving]
  - Overdose [Unknown]
  - Acute respiratory failure [Recovering/Resolving]
  - Pulmonary oedema [Recovering/Resolving]
